FAERS Safety Report 14412935 (Version 1)
Quarter: 2018Q1

REPORT INFORMATION
  Report Type: Spontaneous
  Country: US (occurrence: US)
  Receive Date: 20180119
  Receipt Date: 20180119
  Transmission Date: 20180509
  Serious: Yes (Hospitalization)
  Sender: FDA-Public Use
  Company Number: None

PATIENT
  Age: 82 Year
  Sex: Male
  Weight: 122.3 kg

DRUGS (13)
  1. LISINOPRIL. [Suspect]
     Active Substance: LISINOPRIL
     Indication: HYPERTENSION
     Route: 048
  2. NORCO [Concomitant]
     Active Substance: ACETAMINOPHEN\HYDROCODONE BITARTRATE
  3. ECOTRIN [Concomitant]
     Active Substance: ASPIRIN
  4. NORVASC [Concomitant]
     Active Substance: AMLODIPINE BESYLATE
  5. PRADAXA [Concomitant]
     Active Substance: DABIGATRAN ETEXILATE MESYLATE
  6. SPIRONOLACTONE. [Suspect]
     Active Substance: SPIRONOLACTONE
     Indication: HYPERTENSION
     Route: 048
  7. LASIX OSTEO BIFLEX [Concomitant]
  8. TYLENOL [Concomitant]
     Active Substance: ACETAMINOPHEN
  9. LIPITOR [Concomitant]
     Active Substance: ATORVASTATIN CALCIUM
  10. OMEGA 3 [Concomitant]
     Active Substance: OMEGA-3 FATTY ACIDS
  11. ALLEGRA [Concomitant]
     Active Substance: FEXOFENADINE HYDROCHLORIDE
  12. SPS [Concomitant]
     Active Substance: SODIUM POLYSTYRENE SULFONATE
  13. TOPROL XL [Concomitant]
     Active Substance: METOPROLOL SUCCINATE

REACTIONS (3)
  - Hypovolaemia [None]
  - Acute kidney injury [None]
  - Hyperkalaemia [None]

NARRATIVE: CASE EVENT DATE: 20171030
